FAERS Safety Report 14588068 (Version 4)
Quarter: 2018Q2

REPORT INFORMATION
  Report Type: Spontaneous
  Country: SG (occurrence: SG)
  Receive Date: 20180301
  Receipt Date: 20180416
  Transmission Date: 20180711
  Serious: Yes (Life-Threatening)
  Sender: FDA-Public Use
  Company Number: SG-PFIZER INC-2018085496

PATIENT
  Age: 6 Decade
  Sex: Female

DRUGS (6)
  1. DOXORUBICIN HCL [Suspect]
     Active Substance: DOXORUBICIN HYDROCHLORIDE
     Indication: MANTLE CELL LYMPHOMA
     Dosage: UNK, CYCLIC (1 CYCLE OF THE NORDIC PROTOCOL)
  2. CYTARABINE. [Suspect]
     Active Substance: CYTARABINE
     Indication: MANTLE CELL LYMPHOMA
     Dosage: UNK, CYCLIC (1 CYCLE OF THE NORDIC PROTOCOL)
  3. VINCRISTINE SULFATE. [Suspect]
     Active Substance: VINCRISTINE SULFATE
     Indication: MANTLE CELL LYMPHOMA
     Dosage: UNK, CYCLIC (1 CYCLE OF THE NORDIC PROTOCOL)
  4. PREDNISOLONE. [Suspect]
     Active Substance: PREDNISOLONE
     Indication: MANTLE CELL LYMPHOMA
     Dosage: UNK, CYCLIC (1 CYCLE OF THE NORDIC PROTOCOL)
  5. CYCLOPHOSPHAMIDE. [Suspect]
     Active Substance: CYCLOPHOSPHAMIDE
     Indication: MANTLE CELL LYMPHOMA
     Dosage: UNK, CYCLIC (1 CYCLE OF THE NORDIC PROTOCOL)
  6. RITUXIMAB. [Suspect]
     Active Substance: RITUXIMAB
     Indication: MANTLE CELL LYMPHOMA
     Dosage: UNK, CYCLIC (1 CYCLE OF THE NORDIC PROTOCOL)

REACTIONS (2)
  - Tumour lysis syndrome [Unknown]
  - Neutropenic sepsis [Unknown]
